FAERS Safety Report 19224835 (Version 1)
Quarter: 2021Q2

REPORT INFORMATION
  Report Type: Spontaneous
  Country: FR (occurrence: FR)
  Receive Date: 20210506
  Receipt Date: 20210506
  Transmission Date: 20210717
  Serious: Yes (Hospitalization)
  Sender: FDA-Public Use
  Company Number: FR-TEVA-2021-FR-1907472

PATIENT
  Age: 59 Year
  Sex: Female
  Weight: 67 kg

DRUGS (4)
  1. %MOXIFLOXACINE% [Suspect]
     Active Substance: MOXIFLOXACIN
     Indication: ANTIBIOTIC THERAPY
     Dosage: 400MG
     Route: 048
     Dates: start: 20210326, end: 20210329
  2. AMOXICILLINE [AMOXICILLIN] [Suspect]
     Active Substance: AMOXICILLIN
     Indication: ANTIBIOTIC THERAPY
     Dosage: 6 GRAM
     Route: 048
     Dates: start: 20210325, end: 20210329
  3. BACTRIM [Suspect]
     Active Substance: SULFAMETHOXAZOLE\TRIMETHOPRIM
     Indication: ANTIBIOTIC THERAPY
     Dosage: 1600 MG
     Route: 048
     Dates: start: 20210329, end: 20210406
  4. LEVOFLOXACIN TEVA [Suspect]
     Active Substance: LEVOFLOXACIN
     Indication: ANTIBIOTIC THERAPY
     Dosage: 500 MG
     Route: 048
     Dates: start: 20210330, end: 20210406

REACTIONS (2)
  - Hepatic enzyme increased [Recovered/Resolved]
  - Toxic skin eruption [Recovered/Resolved]

NARRATIVE: CASE EVENT DATE: 20210329
